FAERS Safety Report 10783455 (Version 8)
Quarter: 2016Q3

REPORT INFORMATION
  Report Type: Spontaneous
  Country: FR (occurrence: FR)
  Receive Date: 20150210
  Receipt Date: 20160809
  Transmission Date: 20161109
  Serious: Yes (Life-Threatening, Hospitalization, Other)
  Sender: FDA-Public Use
  Company Number: FR-GILEAD-2015-0136037

PATIENT
  Age: 61 Year
  Sex: Female
  Weight: 76 kg

DRUGS (13)
  1. AMIODARONE [Interacting]
     Active Substance: AMIODARONE
     Indication: ARRHYTHMIA
     Dosage: UNK LOWER DOSE
     Route: 048
  2. PREVISCAN                          /00261401/ [Concomitant]
     Active Substance: PENTOXIFYLLINE
     Dosage: 15 MG, QD
     Route: 048
  3. ATORVASTATIN [Concomitant]
     Active Substance: ATORVASTATIN
     Indication: PRODUCT USED FOR UNKNOWN INDICATION
     Dosage: 20 MG, UNK
  4. FLUINDIONE [Concomitant]
     Active Substance: FLUINDIONE
     Indication: PRODUCT USED FOR UNKNOWN INDICATION
  5. ATENOLOL. [Suspect]
     Active Substance: ATENOLOL
     Indication: CARDIAC DISORDER
     Dosage: 50 MG, QD
     Route: 048
     Dates: start: 20150109
  6. DACLATASVIR. [Suspect]
     Active Substance: DACLATASVIR
     Indication: HEPATITIS C
     Dosage: 60 MG, UNK
     Route: 048
     Dates: start: 20150112, end: 20150112
  7. TAHOR [Concomitant]
     Active Substance: ATORVASTATIN CALCIUM
     Dosage: 20 MG, UNK
     Route: 048
  8. SOVALDI [Suspect]
     Active Substance: SOFOSBUVIR
     Indication: CHRONIC HEPATITIS C
     Dosage: 400 MG, UNK
     Route: 048
     Dates: start: 20150112, end: 20150112
  9. LEVOTHYROX [Concomitant]
     Active Substance: LEVOTHYROXINE
     Dosage: 75 ?G, QD
     Route: 048
  10. BISOPROLOL [Concomitant]
     Active Substance: BISOPROLOL
     Dosage: 2.5 UNK
     Route: 065
     Dates: end: 20150109
  11. ATENOLOL. [Suspect]
     Active Substance: ATENOLOL
     Indication: HYPERTENSION
     Dosage: UNK
     Route: 048
  12. AMIODARONE [Interacting]
     Active Substance: AMIODARONE
     Indication: CARDIAC DISORDER
     Dosage: 200 MG, QD
     Route: 048
     Dates: end: 20150112
  13. TOPALGIC                           /00599202/ [Concomitant]
     Active Substance: TRAMADOL
     Dosage: 100 MG, UNK
     Route: 048
     Dates: end: 20150112

REACTIONS (13)
  - Cardio-respiratory arrest [Recovered/Resolved]
  - Cardiac failure congestive [Unknown]
  - Pneumonia staphylococcal [Recovered/Resolved]
  - Sinus node dysfunction [Recovered/Resolved]
  - Malaise [Unknown]
  - Depressed level of consciousness [Unknown]
  - Dizziness [Unknown]
  - Bradycardia [Recovered/Resolved]
  - Respiratory failure [Unknown]
  - Syncope [Recovered/Resolved]
  - Cardiac arrest [Not Recovered/Not Resolved]
  - Acute kidney injury [Unknown]
  - Drug interaction [Unknown]

NARRATIVE: CASE EVENT DATE: 20150112
